FAERS Safety Report 14841862 (Version 4)
Quarter: 2018Q4

REPORT INFORMATION
  Report Type: Spontaneous
  Country: JP (occurrence: JP)
  Receive Date: 20180503
  Receipt Date: 20181005
  Transmission Date: 20190204
  Serious: Yes (Death, Hospitalization, Other)
  Sender: FDA-Public Use
  Company Number: JP-INCYTE CORPORATION-2018IN004069

PATIENT

DRUGS (20)
  1. JAKAVI [Suspect]
     Active Substance: RUXOLITINIB
     Dosage: 20 MG, UNK
     Route: 048
     Dates: start: 20180417, end: 20180424
  2. JAKAVI [Suspect]
     Active Substance: RUXOLITINIB
     Dosage: 30 MG, UNK
     Route: 048
     Dates: start: 20180508, end: 20180517
  3. SAMSCA [Concomitant]
     Active Substance: TOLVAPTAN
     Indication: CARDIAC FAILURE CONGESTIVE
     Dosage: 15 MG, QD
     Route: 048
     Dates: start: 20180206
  4. GLUCOSE [Concomitant]
     Active Substance: DEXTROSE
     Indication: PRODUCT USED FOR UNKNOWN INDICATION
     Dosage: 250 ML, UNK
     Route: 065
  5. JAKAVI [Suspect]
     Active Substance: RUXOLITINIB
     Indication: ESSENTIAL THROMBOCYTHAEMIA
     Dosage: 10 MG, BID
     Route: 048
     Dates: start: 20180207, end: 20180326
  6. JAKAVI [Suspect]
     Active Substance: RUXOLITINIB
     Indication: LEUKAEMIA
     Dosage: 15 MG, BID
     Route: 048
     Dates: start: 20180327, end: 20180416
  7. JAKAVI [Suspect]
     Active Substance: RUXOLITINIB
     Dosage: 20 MG, UNK
     Route: 048
     Dates: start: 20180501, end: 20180507
  8. ARGAMATE [Concomitant]
     Active Substance: CALCIUM POLYSTYRENE SULFONATE
     Indication: HYPERKALAEMIA
     Dosage: 25 G, BID
     Route: 048
     Dates: start: 20180206
  9. SAMSCA [Concomitant]
     Active Substance: TOLVAPTAN
     Dosage: UNK
     Route: 048
     Dates: start: 20180502
  10. SAMSCA [Concomitant]
     Active Substance: TOLVAPTAN
     Dosage: UNK
     Route: 048
     Dates: start: 20180327
  11. MAINTATE [Concomitant]
     Active Substance: BISOPROLOL FUMARATE
     Indication: CARDIAC FAILURE CONGESTIVE
     Dosage: 1.25 MG, QD
     Route: 065
     Dates: start: 20180206
  12. DIART [Concomitant]
     Active Substance: AZOSEMIDE
     Indication: CARDIAC FAILURE CONGESTIVE
     Dosage: 30 MG, UNK
     Route: 048
     Dates: start: 20180206, end: 20180416
  13. DIAINAMIX [Concomitant]
     Indication: PRODUCT USED FOR UNKNOWN INDICATION
     Dosage: 10 ML, UNK
     Route: 065
  14. AMLODIN [Concomitant]
     Active Substance: AMLODIPINE BESYLATE
     Indication: HYPERTENSION
     Dosage: 5 MG, BID
     Route: 048
     Dates: start: 20180206
  15. FEBURIC [Concomitant]
     Active Substance: FEBUXOSTAT
     Indication: PRODUCT USED FOR UNKNOWN INDICATION
     Dosage: 20 MG, QD
     Route: 048
     Dates: start: 20180206
  16. TAKECAB [Concomitant]
     Active Substance: VONOPRAZAN FUMURATE
     Indication: GASTROOESOPHAGEAL REFLUX DISEASE
     Dosage: 20 MG, QD
     Route: 048
     Dates: start: 20180206
  17. FEBURIC [Concomitant]
     Active Substance: FEBUXOSTAT
     Dosage: 20 MG, UNK
     Route: 048
     Dates: start: 20180502
  18. HYDREA [Concomitant]
     Active Substance: HYDROXYUREA
     Indication: ESSENTIAL THROMBOCYTHAEMIA
     Dosage: 500 MG, QD
     Route: 065
     Dates: start: 201202
  19. FAMOTIDINE. [Concomitant]
     Active Substance: FAMOTIDINE
     Indication: PRODUCT USED FOR UNKNOWN INDICATION
     Dosage: 20 MG, UNK
     Route: 065
  20. NESP [Concomitant]
     Active Substance: DARBEPOETIN ALFA
     Indication: MYELODYSPLASTIC SYNDROME
     Dosage: UNK
     Route: 065
     Dates: start: 20171228

REACTIONS (39)
  - Tubulointerstitial nephritis [Unknown]
  - Lacunar infarction [Unknown]
  - Pulmonary alveolar haemorrhage [Fatal]
  - Respiratory failure [Fatal]
  - Urinary tract infection [Unknown]
  - Concomitant disease aggravated [Fatal]
  - Renal disorder [Fatal]
  - Multiple organ dysfunction syndrome [Fatal]
  - Pneumonia [Fatal]
  - Renal failure [Unknown]
  - Sinusitis [Unknown]
  - Bone marrow leukaemic cell infiltration [Unknown]
  - Hypophagia [Unknown]
  - Blood creatinine increased [Unknown]
  - Haemorrhage subcutaneous [Unknown]
  - Proteinuria [Unknown]
  - Pyrexia [Unknown]
  - Glomerulosclerosis [Unknown]
  - Iron overload [Unknown]
  - Wheezing [Unknown]
  - Cerebral atrophy [Unknown]
  - Pancytopenia [Unknown]
  - Leukaemic infiltration renal [Unknown]
  - Weight increased [Unknown]
  - White matter lesion [Unknown]
  - Hepatic enzyme increased [Unknown]
  - Cardiomegaly [Unknown]
  - Abdominal distension [Unknown]
  - Leukaemic infiltration pulmonary [Unknown]
  - Leukaemia [Fatal]
  - Pleural effusion [Unknown]
  - Oedema peripheral [Unknown]
  - Generalised oedema [Unknown]
  - Oxygen saturation abnormal [Recovering/Resolving]
  - Ascites [Unknown]
  - Cardiac failure congestive [Fatal]
  - Haematuria [Unknown]
  - Kidney enlargement [Unknown]
  - Back pain [Unknown]

NARRATIVE: CASE EVENT DATE: 20180219
